FAERS Safety Report 16091173 (Version 1)
Quarter: 2019Q1

REPORT INFORMATION
  Report Type: Spontaneous
  Country: US (occurrence: US)
  Receive Date: 20190319
  Receipt Date: 20190319
  Transmission Date: 20190418
  Serious: Yes (Other)
  Sender: FDA-Public Use
  Company Number: US-ARBOR PHARMACEUTICALS, LLC-US-2019ARB000524

PATIENT
  Sex: Male

DRUGS (1)
  1. EDARBYCLOR [Suspect]
     Active Substance: AZILSARTAN KAMEDOXOMIL\CHLORTHALIDONE
     Indication: BLOOD PRESSURE MANAGEMENT
     Dosage: UNK
     Dates: start: 20181207, end: 201812

REACTIONS (4)
  - Cardiac flutter [Unknown]
  - Cardiovascular disorder [Unknown]
  - Heart rate decreased [Unknown]
  - Heart rate irregular [Unknown]
